FAERS Safety Report 5523789-7 (Version None)
Quarter: 2007Q4

REPORT INFORMATION
  Report Type: 
  Country: None (occurrence: None)
  Receive Date: 20071121
  Receipt Date: 20071113
  Transmission Date: 20080405
  Serious: Yes (Other)
  Sender: FDA-Public Use
  Company Number: US-JNJFOC-20071105036

PATIENT
  Sex: Female

DRUGS (3)
  1. REMICADE [Suspect]
     Indication: CROHN'S DISEASE
     Route: 042
  2. 6-MP [Concomitant]
     Indication: CROHN'S DISEASE
  3. ASACOL [Concomitant]
     Indication: CROHN'S DISEASE

REACTIONS (6)
  - ANTIBODY TEST POSITIVE [None]
  - ANTINUCLEAR ANTIBODY POSITIVE [None]
  - CHILLS [None]
  - PAIN IN EXTREMITY [None]
  - RASH [None]
  - SYSTEMIC LUPUS ERYTHEMATOSUS [None]
